FAERS Safety Report 24728687 (Version 3)
Quarter: 2025Q1

REPORT INFORMATION
  Report Type: Report from Study
  Country: JP (occurrence: JP)
  Receive Date: 20241212
  Receipt Date: 20250115
  Transmission Date: 20250409
  Serious: Yes (Death)
  Sender: ABBVIE
  Company Number: JP-ABBVIE-6044462

PATIENT
  Age: 69 Year
  Sex: Female
  Weight: 33 kg

DRUGS (11)
  1. CARBIDOPA\LEVODOPA [Suspect]
     Active Substance: CARBIDOPA\LEVODOPA
     Indication: Parkinson^s disease
     Route: 050
     Dates: start: 201906
  2. CARBIDOPA\LEVODOPA [Suspect]
     Active Substance: CARBIDOPA\LEVODOPA
     Route: 050
     Dates: start: 20190817, end: 20191207
  3. CARBIDOPA\LEVODOPA [Suspect]
     Active Substance: CARBIDOPA\LEVODOPA
     Route: 050
     Dates: start: 20191207, end: 20200404
  4. CARBIDOPA\LEVODOPA [Suspect]
     Active Substance: CARBIDOPA\LEVODOPA
     Route: 050
     Dates: start: 20200404
  5. ALFACALCIDOL [Concomitant]
     Active Substance: ALFACALCIDOL
     Indication: Prophylaxis
     Route: 048
  6. Amantadine hydrochloride renata [Concomitant]
     Indication: Parkinson^s disease
     Dosage: 100 MILLIGRAM
     Route: 048
  7. CARBIDOPA AND LEVODOPA [Concomitant]
     Active Substance: CARBIDOPA\LEVODOPA
     Indication: On and off phenomenon
  8. CARBIDOPA, LEVODOPA AND ENTACAPONE [Concomitant]
     Active Substance: CARBIDOPA\ENTACAPONE\LEVODOPA
     Indication: Parkinson^s disease
     Dosage: 200 MILLIGRAM
     Route: 048
  9. CLONAZEPAM [Concomitant]
     Active Substance: CLONAZEPAM
     Indication: Rapid eye movement sleep behaviour disorder
     Route: 048
  10. BETAMETHASONE [Suspect]
     Active Substance: BETAMETHASONE
     Indication: Stoma site hypergranulation
     Route: 061
     Dates: start: 20200404
  11. SOLIFENACIN SUCCINATE [Concomitant]
     Active Substance: SOLIFENACIN SUCCINATE
     Indication: Hypertonic bladder
     Route: 048

REACTIONS (13)
  - Respiratory failure [Fatal]
  - Pneumonia aspiration [Fatal]
  - Parkinson^s disease [Unknown]
  - Medical device pain [Unknown]
  - Kyphosis [Not Recovered/Not Resolved]
  - Stoma site hypergranulation [Recovering/Resolving]
  - Stoma site erythema [Unknown]
  - Stoma site candida [Recovering/Resolving]
  - Stoma site dermatitis [Recovering/Resolving]
  - Stoma site abscess [Unknown]
  - Pyrexia [Unknown]
  - Discomfort [Unknown]
  - Device colour issue [Unknown]

NARRATIVE: CASE EVENT DATE: 20190822
